FAERS Safety Report 9862135 (Version 2)
Quarter: 2014Q1

REPORT INFORMATION
  Report Type: Spontaneous
  Country: CN (occurrence: CN)
  Receive Date: 20140203
  Receipt Date: 20140226
  Transmission Date: 20141002
  Serious: Yes (Hospitalization)
  Sender: FDA-Public Use
  Company Number: CN-ASTELLAS-2014JP000756

PATIENT
  Age: 51 Year
  Sex: Female
  Weight: 62 kg

DRUGS (9)
  1. TACROLIMUS SUSTAINED-RELEASE CAPSULES [Suspect]
     Indication: PROPHYLAXIS AGAINST TRANSPLANT REJECTION
     Dosage: UNK
     Route: 048
     Dates: start: 20140110, end: 20140122
  2. ATG FRESENIUS S [Suspect]
     Indication: IMMUNOSUPPRESSANT DRUG THERAPY
     Dosage: 550 MG, UID/QD
     Route: 042
     Dates: start: 20140109, end: 20140109
  3. CELLCEPT /01275102/ [Suspect]
     Indication: PROPHYLAXIS AGAINST TRANSPLANT REJECTION
     Dosage: 500 UNK, Q12 HOURS
     Route: 048
     Dates: start: 20140110
  4. PREDNISOLONE [Concomitant]
     Indication: PROPHYLAXIS AGAINST TRANSPLANT REJECTION
     Dosage: UNK
     Route: 048
     Dates: start: 20140111
  5. GLUTATHIONE [Concomitant]
     Indication: PROPHYLAXIS
     Dosage: 0.4 G, TID
     Route: 048
     Dates: start: 20140113
  6. BICYCLOL [Concomitant]
     Indication: PROPHYLAXIS
     Dosage: 50 MG, BID
     Route: 048
     Dates: start: 20140113
  7. INSULIN [Concomitant]
     Indication: DIABETES MELLITUS
     Dosage: 6 U, TID
     Route: 062
  8. GASTER                             /00706001/ [Concomitant]
     Indication: GASTRITIS PROPHYLAXIS
     Dosage: 20 UNK, UNK
     Route: 048
     Dates: start: 20140112
  9. GANCICLOVIR [Concomitant]
     Indication: ANTIVIRAL PROPHYLAXIS
     Dosage: 0.5 UNK, UNK
     Route: 048
     Dates: start: 20140112

REACTIONS (1)
  - Renal tubular necrosis [Recovered/Resolved]
